FAERS Safety Report 8426217-7 (Version None)
Quarter: 2012Q2

REPORT INFORMATION
  Report Type: 
  Country: None (occurrence: None)
  Receive Date: 20120323
  Receipt Date: 20110524
  Transmission Date: 20120825
  Serious: Yes (Hospitalization, Other)
  Sender: FDA-Public Use
  Company Number: 163-21880-11043119

PATIENT
  Age: 52 Year
  Sex: Female

DRUGS (7)
  1. VELCADE [Concomitant]
  2. ACYCLOVIR [Concomitant]
  3. ASPIRIN [Concomitant]
  4. CALCIUM + VITAMIN D (CALCIUM D3 ^STADA^) [Concomitant]
  5. LEXAPRO [Concomitant]
  6. REVLIMID [Suspect]
     Indication: MULTIPLE MYELOMA
     Dosage: 10 MG, DAILY FOR 14 DAYS/ OFF 7, PO
     Route: 048
     Dates: start: 20110319, end: 20110321
  7. PROTONIX [Concomitant]

REACTIONS (5)
  - NEUTROPENIA [None]
  - RENAL FAILURE [None]
  - PYREXIA [None]
  - ANAEMIA [None]
  - DIARRHOEA [None]
